FAERS Safety Report 10063327 (Version 5)
Quarter: 2014Q3

REPORT INFORMATION
  Report Type: Report from Study
  Country: US (occurrence: US)
  Receive Date: 20140407
  Receipt Date: 20140805
  Transmission Date: 20150326
  Serious: Yes (Other)
  Sender: FDA-Public Use
  Company Number: US-EXELIXIS-CABO-14004127

PATIENT
  Age: 84 Year
  Sex: Female
  Weight: 67 kg

DRUGS (8)
  1. CABOZANTINIB [Suspect]
     Active Substance: CABOZANTINIB
     Dosage: 140 MG, QD
     Route: 048
     Dates: start: 20140409, end: 20140619
  2. ASPIRIN. [Concomitant]
     Active Substance: ASPIRIN
  3. LISINOPRIL. [Concomitant]
     Active Substance: LISINOPRIL
  4. CABOZANTINIB [Suspect]
     Active Substance: CABOZANTINIB
     Indication: THYROID CANCER
     Dosage: 140 MG, QD
     Route: 048
     Dates: start: 20140322, end: 20140329
  5. CEPHALEXIN. [Concomitant]
     Active Substance: CEPHALEXIN
  6. GLIPIZIDE. [Concomitant]
     Active Substance: GLIPIZIDE
  7. SPIRONOLACTONE. [Concomitant]
     Active Substance: SPIRONOLACTONE
  8. FUROSEMIDE. [Concomitant]
     Active Substance: FUROSEMIDE

REACTIONS (15)
  - Hypogeusia [Unknown]
  - Dysphonia [Unknown]
  - Diarrhoea [Unknown]
  - Dehydration [Unknown]
  - Neck pain [Unknown]
  - Headache [Unknown]
  - Pain in jaw [Unknown]
  - Blood sodium decreased [Unknown]
  - Dry skin [Unknown]
  - Hypertensive crisis [Unknown]
  - Blood magnesium decreased [Unknown]
  - Abdominal pain [Recovered/Resolved]
  - Blood urine present [Unknown]
  - Dry mouth [Not Recovered/Not Resolved]
  - Oral mucosal blistering [Not Recovered/Not Resolved]

NARRATIVE: CASE EVENT DATE: 2014
